FAERS Safety Report 20207220 (Version 3)
Quarter: 2021Q4

REPORT INFORMATION
  Report Type: Spontaneous
  Country: FR (occurrence: FR)
  Receive Date: 20211220
  Receipt Date: 20211231
  Transmission Date: 20220303
  Serious: Yes (Death)
  Sender: FDA-Public Use
  Company Number: FR-CELGENE-FRA-20211205640

PATIENT
  Age: 56 Year
  Sex: Male

DRUGS (1)
  1. ONUREG [Suspect]
     Active Substance: AZACITIDINE
     Indication: Acute myeloid leukaemia
     Dosage: 300 MILLIGRAM
     Route: 048
     Dates: start: 20210628, end: 20210905

REACTIONS (1)
  - Death [Fatal]

NARRATIVE: CASE EVENT DATE: 20210905
